FAERS Safety Report 5590849-4 (Version None)
Quarter: 2008Q1

REPORT INFORMATION
  Report Type: 
  Country: None (occurrence: None)
  Receive Date: 20080110
  Receipt Date: 20080102
  Transmission Date: 20080703
  Serious: Yes (Life-Threatening, Other)
  Sender: FDA-Public Use
  Company Number: 100#08#2008-00077

PATIENT
  Age: 75 Year
  Sex: Male

DRUGS (4)
  1. METHOTREXATE [Suspect]
     Indication: ANKYLOSING SPONDYLITIS
     Dosage: 15 MG (DAY 1), 25 MG (DAY 2) INTRAVENOUS; INTRAVENOUS
     Route: 042
  2. BISOPROLOL FUMARATE [Concomitant]
  3. LISINOPRIL [Concomitant]
  4. OXYCODON (OXYCODON) [Concomitant]

REACTIONS (5)
  - BLOOD CREATININE INCREASED [None]
  - BONE MARROW FAILURE [None]
  - DRUG TOXICITY [None]
  - SKIN TOXICITY [None]
  - TOXIC EPIDERMAL NECROLYSIS [None]
